FAERS Safety Report 7577293-5 (Version None)
Quarter: 2011Q2

REPORT INFORMATION
  Report Type: 
  Country: None (occurrence: None)
  Receive Date: 20110628
  Receipt Date: 20110613
  Transmission Date: 20111010
  Serious: Yes (Other)
  Sender: FDA-Public Use
  Company Number: US-BAYER-201039904NA

PATIENT
  Age: 45 Year
  Sex: Female
  Weight: 82.086 kg

DRUGS (4)
  1. SMZ/TMP DOUBLE-STR [Concomitant]
     Dosage: UNK
     Dates: start: 20060210, end: 20060320
  2. YASMIN [Suspect]
     Indication: ACNE
     Dosage: UNK
     Route: 048
     Dates: start: 20050717, end: 20060130
  3. YASMIN [Suspect]
     Indication: MENORRHAGIA
  4. CLOBETASOL PROPIONATE [Concomitant]
     Dosage: UNK
     Dates: start: 20060118, end: 20061013

REACTIONS (1)
  - DEEP VEIN THROMBOSIS [None]
